FAERS Safety Report 15699763 (Version 1)
Quarter: 2018Q4

REPORT INFORMATION
  Report Type: Spontaneous
  Country: CH (occurrence: CH)
  Receive Date: 20181207
  Receipt Date: 20181207
  Transmission Date: 20190205
  Serious: Yes (Hospitalization, Other)
  Sender: FDA-Public Use
  Company Number: CH-JNJFOC-20181203227

PATIENT
  Age: 80 Year
  Sex: Male
  Weight: 87 kg

DRUGS (3)
  1. LISINOPRIL AXAPHARM [Concomitant]
     Route: 065
  2. CIPROXIN [Concomitant]
     Active Substance: CIPROFLOXACIN
     Indication: EPIDIDYMITIS
     Route: 065
     Dates: start: 201811, end: 20181116
  3. XARELTO [Suspect]
     Active Substance: RIVAROXABAN
     Indication: ATRIAL FIBRILLATION
     Route: 048
     Dates: start: 2015, end: 20181112

REACTIONS (3)
  - Myelopathy [Recovering/Resolving]
  - Quadriplegia [Recovering/Resolving]
  - Spinal epidural haematoma [Recovering/Resolving]

NARRATIVE: CASE EVENT DATE: 20181112
